FAERS Safety Report 9205804 (Version 2)
Quarter: 2013Q2

REPORT INFORMATION
  Report Type: Spontaneous
  Country: GB (occurrence: None)
  Receive Date: 20130401
  Receipt Date: 20130530
  Transmission Date: 20140414
  Serious: Yes (Death, Life-Threatening, Hospitalization, Disabling)
  Sender: FDA-Public Use
  Company Number: AG-2013-0872

PATIENT
  Age: 83 Year
  Sex: Male
  Weight: 71.9 kg

DRUGS (7)
  1. LEUKERAN [Suspect]
     Indication: CHRONIC LYMPHOCYTIC LEUKAEMIA
     Route: 048
     Dates: start: 20110912, end: 20120220
  2. OBINUTUZUMAB [Suspect]
     Indication: CHRONIC LYMPHOCYTIC LEUKAEMIA
     Route: 042
     Dates: start: 20110912, end: 20120220
  3. CLARITHROMYCIN [Concomitant]
  4. DICLOFENAC [Concomitant]
  5. DOMPERIDON [Concomitant]
  6. CO-TRIMOXAZOLE [Concomitant]
  7. CODEINE PHOSPATE (CODEINE) [Concomitant]

REACTIONS (7)
  - Plasma cell myeloma [None]
  - Confusional state [None]
  - Hypercalcaemia [None]
  - Back pain [None]
  - Osteopenia [None]
  - Spinal fracture [None]
  - Plasma cell myeloma [None]
